FAERS Safety Report 8223682-5 (Version None)
Quarter: 2012Q1

REPORT INFORMATION
  Report Type: 
  Country: None (occurrence: None)
  Receive Date: 20120321
  Receipt Date: 20120309
  Transmission Date: 20120608
  Serious: No
  Sender: FDA-Public Use
  Company Number: JP-ELI_LILLY_AND_COMPANY-JP201111007701

PATIENT
  Age: 63 Year
  Sex: Female

DRUGS (1)
  1. FORTEO [Suspect]
     Dosage: UNK
     Route: 058
     Dates: start: 20111101

REACTIONS (4)
  - NAUSEA [None]
  - WEIGHT INCREASED [None]
  - VISUAL ACUITY REDUCED [None]
  - DYSPEPSIA [None]
